FAERS Safety Report 9856366 (Version 1)
Quarter: 2014Q1

REPORT INFORMATION
  Report Type: Spontaneous
  Country: US (occurrence: US)
  Receive Date: 20140130
  Receipt Date: 20140130
  Transmission Date: 20141002
  Serious: No
  Sender: FDA-Public Use
  Company Number: US-PFIZER INC-2014025607

PATIENT
  Age: 63 Year
  Sex: Female
  Weight: 97.51 kg

DRUGS (3)
  1. IBUPROFEN [Suspect]
     Dosage: UNK, AS NEEDED
  2. BABY ASPIRIN [Interacting]
     Dosage: UNK
  3. PLAVIX [Interacting]
     Dosage: 75 MG, ONCE A DAY

REACTIONS (1)
  - Drug interaction [Unknown]
